FAERS Safety Report 8403411-2 (Version None)
Quarter: 2012Q2

REPORT INFORMATION
  Report Type: 
  Country: None (occurrence: None)
  Receive Date: 20120601
  Receipt Date: 20120524
  Transmission Date: 20120825
  Serious: Yes (Other)
  Sender: FDA-Public Use
  Company Number: IE-ABBOTT-12P-229-0929634-00

PATIENT
  Sex: Female

DRUGS (6)
  1. PENTASA [Concomitant]
     Indication: CROHN'S DISEASE
     Dosage: 1 BD
     Route: 048
     Dates: start: 20120202
  2. LOSEPINE [Concomitant]
     Indication: GASTROINTESTINAL DISORDER
     Route: 048
     Dates: start: 20100101
  3. HUMIRA [Suspect]
     Indication: CROHN'S DISEASE
  4. IMURAN [Concomitant]
     Indication: CROHN'S DISEASE
     Route: 048
     Dates: start: 20080101, end: 20120401
  5. HUMIRA [Suspect]
     Indication: ARTHRITIS
     Dosage: FORTNIGHTLY
     Route: 058
     Dates: start: 20120201
  6. MICROLITE [Concomitant]
     Indication: PRODUCT USED FOR UNKNOWN INDICATION
     Route: 048
     Dates: start: 20090101

REACTIONS (5)
  - INJECTION SITE SWELLING [None]
  - INJECTION SITE PRURITUS [None]
  - INJECTION SITE WARMTH [None]
  - INJECTION SITE ERYTHEMA [None]
  - INJECTION SITE PAIN [None]
